FAERS Safety Report 7931629-1 (Version None)
Quarter: 2011Q4

REPORT INFORMATION
  Report Type: 
  Country: None (occurrence: None)
  Receive Date: 20111121
  Receipt Date: 20111108
  Transmission Date: 20120403
  Serious: Yes (Hospitalization, Other)
  Sender: FDA-Public Use
  Company Number: PHHY2011JP099991

PATIENT
  Sex: Male
  Weight: 60 kg

DRUGS (6)
  1. DIOVAN HCT [Suspect]
     Indication: HYPERTENSION
     Dosage: 1 DF
     Route: 048
     Dates: start: 20100811, end: 20110112
  2. ATELEC [Concomitant]
     Indication: HYPERTENSION
     Dosage: 10 MG
     Route: 048
     Dates: start: 20101215
  3. ALLOPURINOL [Concomitant]
     Dosage: 100 MG
     Route: 048
     Dates: start: 20091114
  4. DIART [Concomitant]
     Dosage: 30 M
     Route: 048
     Dates: start: 20091114
  5. MUCODYNE [Concomitant]
     Dosage: 750 MG, UNK
     Route: 048
     Dates: start: 20091114
  6. DASEN [Concomitant]
     Dosage: 30 MG, UNK
     Route: 048
     Dates: start: 20091114

REACTIONS (2)
  - RENAL IMPAIRMENT [None]
  - CARDIAC FAILURE [None]
